FAERS Safety Report 15672896 (Version 4)
Quarter: 2019Q1

REPORT INFORMATION
  Report Type: Report from Study
  Country: US (occurrence: US)
  Receive Date: 20181129
  Receipt Date: 20190208
  Transmission Date: 20190417
  Serious: Yes (Other)
  Sender: FDA-Public Use
  Company Number: US-JNJFOC-20181131589

PATIENT
  Age: 18 Year
  Sex: Female
  Weight: 60.3 kg

DRUGS (11)
  1. BENZOYL PEROXIDE. [Concomitant]
     Active Substance: BENZOYL PEROXIDE
     Route: 065
  2. HIBICLENS [Concomitant]
     Active Substance: CHLORHEXIDINE GLUCONATE
     Route: 065
  3. SLOW-FE [Concomitant]
     Active Substance: FERROUS SULFATE
     Route: 065
  4. XIFAXAN [Concomitant]
     Active Substance: RIFAXIMIN
     Route: 065
     Dates: start: 20181213
  5. ORTHO CYCLEN [Concomitant]
     Active Substance: ETHINYL ESTRADIOL\NORGESTIMATE
     Route: 065
  6. ALTABAX [Concomitant]
     Active Substance: RETAPAMULIN
     Route: 065
  7. BACTROBAN [Concomitant]
     Active Substance: MUPIROCIN\MUPIROCIN CALCIUM
     Route: 065
  8. STELARA [Concomitant]
     Active Substance: USTEKINUMAB
     Route: 058
     Dates: start: 20180813
  9. PREDNISONE. [Concomitant]
     Active Substance: PREDNISONE
     Route: 065
  10. VITAMIN D3 [Concomitant]
     Active Substance: CHOLECALCIFEROL
     Route: 065
  11. REMICADE [Suspect]
     Active Substance: INFLIXIMAB
     Indication: INFLAMMATORY BOWEL DISEASE
     Route: 042
     Dates: start: 20101228

REACTIONS (1)
  - Clostridium difficile infection [Recovered/Resolved]

NARRATIVE: CASE EVENT DATE: 20181005
